FAERS Safety Report 21207805 (Version 1)
Quarter: 2022Q3

REPORT INFORMATION
  Report Type: Spontaneous
  Country: CN (occurrence: CN)
  Receive Date: 20220812
  Receipt Date: 20220812
  Transmission Date: 20221027
  Serious: Yes (Life-Threatening, Other)
  Sender: FDA-Public Use
  Company Number: CN-BAYER-2022A110284

PATIENT
  Age: 58 Year
  Sex: Male
  Weight: 67 kg

DRUGS (1)
  1. AVELOX [Suspect]
     Active Substance: MOXIFLOXACIN HYDROCHLORIDE
     Indication: Pneumonia
     Dosage: 400 MG, QD
     Route: 048
     Dates: start: 20220804, end: 20220804

REACTIONS (4)
  - Atrial tachycardia [Recovering/Resolving]
  - Electrocardiogram abnormal [Recovering/Resolving]
  - Myocardial infarction [None]
  - Dyspnoea [Recovering/Resolving]

NARRATIVE: CASE EVENT DATE: 20220804
